FAERS Safety Report 16305963 (Version 2)
Quarter: 2019Q2

REPORT INFORMATION
  Report Type: Spontaneous
  Country: NL (occurrence: FR)
  Receive Date: 20190513
  Receipt Date: 20190528
  Transmission Date: 20190711
  Serious: Yes (Hospitalization)
  Sender: FDA-Public Use
  Company Number: FR-FRESENIUS KABI-FK201905076

PATIENT
  Age: 67 Year
  Sex: Male

DRUGS (4)
  1. IRINOTECAN (MANUFACTURER UNKNOWN) [Suspect]
     Active Substance: IRINOTECAN
     Indication: ADENOCARCINOMA PANCREAS
     Dosage: 260 MG ACCORDING TO THE CYCLE
     Route: 041
     Dates: start: 20190405, end: 20190405
  2. FLUOROURACIL. [Suspect]
     Active Substance: FLUOROURACIL
     Indication: ADENOCARCINOMA PANCREAS
     Dosage: 8300 MG ACCORDING TO THE CYCLE
     Route: 041
     Dates: start: 20190405, end: 20190407
  3. OXALIPLATIN (MANUFACTURER UNKNOWN) [Suspect]
     Active Substance: OXALIPLATIN
     Indication: ADENOCARCINOMA PANCREAS
     Dosage: 145 MG ACCORDING TO THE CYCLE
     Route: 041
     Dates: start: 20190405, end: 20190405
  4. ONDANSETRON HYDROCHLORIDE. [Suspect]
     Active Substance: ONDANSETRON HYDROCHLORIDE
     Indication: NAUSEA
     Route: 042
     Dates: start: 20190405, end: 20190409

REACTIONS (6)
  - Petit mal epilepsy [Recovering/Resolving]
  - Dyskinesia [Recovering/Resolving]
  - Aphasia [Recovering/Resolving]
  - Decreased eye contact [Recovering/Resolving]
  - Musculoskeletal stiffness [Recovering/Resolving]
  - Leukoencephalopathy [Recovering/Resolving]

NARRATIVE: CASE EVENT DATE: 20190407
